FAERS Safety Report 24468176 (Version 1)
Quarter: 2024Q4

REPORT INFORMATION
  Report Type: Report from Study
  Country: GB (occurrence: GB)
  Receive Date: 20241018
  Receipt Date: 20241018
  Transmission Date: 20250115
  Serious: Yes (Hospitalization, Other)
  Sender: NOVARTIS
  Company Number: GB-002147023-NVSC2024GB197496

PATIENT
  Sex: Male

DRUGS (1)
  1. COSENTYX [Suspect]
     Active Substance: SECUKINUMAB
     Indication: Ankylosing spondylitis
     Dosage: 150 MG, QMO
     Route: 058

REACTIONS (9)
  - Infection [Unknown]
  - Decreased immune responsiveness [Unknown]
  - Sepsis [Recovering/Resolving]
  - Urosepsis [Unknown]
  - Drug ineffective [Unknown]
  - Feeling abnormal [Unknown]
  - Condition aggravated [Unknown]
  - Malaise [Unknown]
  - Pyrexia [Unknown]
